FAERS Safety Report 19964429 (Version 1)
Quarter: 2021Q4

REPORT INFORMATION
  Report Type: Report from Study
  Country: US (occurrence: US)
  Receive Date: 20211018
  Receipt Date: 20211018
  Transmission Date: 20220303
  Serious: No
  Sender: FDA-Public Use
  Company Number: US-NOVARTISTESTPH-NVSC2021US237565

PATIENT
  Sex: Male
  Weight: 78.93 kg

DRUGS (1)
  1. GILENYA [Suspect]
     Active Substance: FINGOLIMOD HYDROCHLORIDE
     Indication: Product used for unknown indication
     Dosage: 0.5 MG, QD
     Route: 048
     Dates: start: 2018, end: 202108

REACTIONS (4)
  - Anger [Unknown]
  - Thinking abnormal [Unknown]
  - Depression [Unknown]
  - Anxiety [Unknown]
